FAERS Safety Report 8247700-3 (Version None)
Quarter: 2012Q1

REPORT INFORMATION
  Report Type: 
  Country: None (occurrence: None)
  Receive Date: 20120330
  Receipt Date: 20120329
  Transmission Date: 20120608
  Serious: Yes (Death, Hospitalization)
  Sender: FDA-Public Use
  Company Number: US-GLAXOSMITHKLINE-A0910009A

PATIENT
  Age: 68 Year
  Sex: Male
  Weight: 92.3 kg

DRUGS (6)
  1. AVANDIA [Suspect]
     Indication: TYPE 2 DIABETES MELLITUS
     Dosage: 8MG PER DAY
     Route: 048
     Dates: end: 20070901
  2. LISINOPRIL [Concomitant]
  3. METFORMIN HCL [Concomitant]
  4. PRILOSEC [Concomitant]
  5. METOPROLOL SUCCINATE [Concomitant]
  6. ZOCOR [Concomitant]

REACTIONS (3)
  - CARDIAC FAILURE CONGESTIVE [None]
  - CARDIOVASCULAR DISORDER [None]
  - MYOCARDIAL INFARCTION [None]
